FAERS Safety Report 9524872 (Version 3)
Quarter: 2013Q4

REPORT INFORMATION
  Report Type: Spontaneous
  Country: DE (occurrence: DE)
  Receive Date: 20130916
  Receipt Date: 20131121
  Transmission Date: 20140711
  Serious: Yes (Life-Threatening, Hospitalization)
  Sender: FDA-Public Use
  Company Number: DE-CELGENEUS-062-21880-13090882

PATIENT
  Age: 78 Year
  Sex: Female
  Weight: 86 kg

DRUGS (4)
  1. REVLIMID [Suspect]
     Indication: PLASMA CELL MYELOMA
     Dosage: 15 MILLIGRAM
     Route: 048
     Dates: start: 20130821, end: 20130903
  2. ASA [Concomitant]
     Indication: PROPHYLAXIS
     Route: 065
     Dates: start: 20130821, end: 20130903
  3. DEXAMETHASONE [Concomitant]
     Indication: PLASMA CELL MYELOMA
     Route: 048
     Dates: start: 20130821, end: 20130903
  4. TRAMAL [Concomitant]
     Indication: PAIN
     Route: 048

REACTIONS (1)
  - Renal failure acute [Not Recovered/Not Resolved]
